FAERS Safety Report 5048790-1 (Version None)
Quarter: 2006Q3

REPORT INFORMATION
  Report Type: 
  Country: None (occurrence: None)
  Receive Date: 20060705
  Receipt Date: 20060613
  Transmission Date: 20061208
  Serious: No
  Sender: FDA-Public Use
  Company Number: JP200606004435

PATIENT
  Age: 24 Year
  Sex: Female

DRUGS (1)
  1. ZYPREXA [Suspect]
     Dosage: ORAL
     Route: 048

REACTIONS (1)
  - GRANULOCYTE COUNT DECREASED [None]
